FAERS Safety Report 8248837-5 (Version None)
Quarter: 2012Q2

REPORT INFORMATION
  Report Type: 
  Country: None (occurrence: None)
  Receive Date: 20120401
  Receipt Date: 20120323
  Transmission Date: 20120825
  Serious: Yes (Hospitalization, Other)
  Sender: FDA-Public Use
  Company Number: PHFR2011GB05411

PATIENT
  Sex: Female

DRUGS (1)
  1. CLOZARIL [Suspect]
     Indication: SCHIZOPHRENIA
     Route: 048
     Dates: start: 20110725

REACTIONS (8)
  - VISUAL ACUITY REDUCED [None]
  - OPTIC NEUROPATHY [None]
  - VISUAL IMPAIRMENT [None]
  - EYE DISORDER [None]
  - HIPPUS [None]
  - MALAISE [None]
  - PUPILLARY REFLEX IMPAIRED [None]
  - DIABETES MELLITUS [None]
